FAERS Safety Report 7576120 (Version 6)
Quarter: 2015Q3

REPORT INFORMATION
  Report Type: Spontaneous
  Country: US (occurrence: None)
  Receive Date: 20100823
  Receipt Date: 20150722
  Transmission Date: 20151125
  Serious: Yes (Other)
  Sender: FDA-Public Use
  Company Number: 2010US002644

PATIENT
  Age: 66 Year
  Sex: Female
  Weight: 86 kg

DRUGS (23)
  1. PROCARDIA [Concomitant]
     Active Substance: NIFEDIPINE
  2. HUMULIN (INSULIN HUMAN, INSULIN HUMAN INJECTION, ISOPHANE) [Concomitant]
  3. NASONEX [Concomitant]
     Active Substance: MOMETASONE FUROATE
  4. HUMALOG [Concomitant]
     Active Substance: INSULIN LISPRO
  5. TRICOR /00090101/ (ADENOSINE) [Concomitant]
  6. PROGRAF [Suspect]
     Active Substance: TACROLIMUS\TACROLIMUS ANHYDROUS
     Indication: LIVER TRANSPLANT
     Dosage: 2 MG, ONCE DAY, ORAL
     Route: 048
  7. ASPIRIN (ACETYLSALICYLIC ACID) [Concomitant]
     Active Substance: ASPIRIN
  8. PLAVIX (CLOPIDOGREL) FORMLATION [Concomitant]
  9. MULTIVITAMIN  (ASCORBIC ACID, CALCIUM PANTOTHENATE, ERGOCALCIFEROL, NICOTINAMIDE, PYRIDOXINE HYDROCHLORIDE, RETINOL, RIBOFLAVIN, THIAMINE HYDROCHLORIDE) FORMULATION [Concomitant]
  10. CLONAZEPAM. [Concomitant]
     Active Substance: CLONAZEPAM
  11. METOPROLOL [Concomitant]
     Active Substance: METOPROLOL
  12. TRICOR [Concomitant]
     Active Substance: FENOFIBRATE
  13. INSULIN NPH (INSULIN ISOPHANE BOVINE) [Concomitant]
  14. VENTOLIN [Concomitant]
     Active Substance: ALBUTEROL SULFATE
  15. FLUOXETINE [Concomitant]
     Active Substance: FLUOXETINE\FLUOXETINE HYDROCHLORIDE
  16. AMLODIPINE [Concomitant]
     Active Substance: AMLODIPINE BESYLATE
  17. LOPRESSOR [Concomitant]
     Active Substance: METOPROLOL TARTRATE
     Indication: IMMUNOSUPPRESSION
     Dosage: UNK, UNKNOWN FREQ., UNKNOWN?
  18. LEVOTHYROXINE (LEVOTHYROXINE) [Concomitant]
     Active Substance: LEVOTHYROXINE
  19. MYFORTIC [Concomitant]
     Active Substance: MYCOPHENOLATE SODIUM
  20. IMDUR (ISOSORBIDE MONONITRATE) TABLET [Concomitant]
  21. SEPTRA (SULFAMETHOXAZOLE, TRIMETHOPRIM) [Concomitant]
  22. VALCYTE (VALGANCICLOVIR HYDROCHLORIDE) [Concomitant]
  23. PREDNISONE. [Concomitant]
     Active Substance: PREDNISONE

REACTIONS (7)
  - Diabetic nephropathy [None]
  - Off label use [None]
  - Renal transplant [None]
  - Dialysis [None]
  - Condition aggravated [None]
  - Diabetes mellitus [None]
  - Nephropathy toxic [None]

NARRATIVE: CASE EVENT DATE: 20100606
